FAERS Safety Report 26093943 (Version 2)
Quarter: 2025Q4

REPORT INFORMATION
  Report Type: Report from Study
  Country: CN (occurrence: CN)
  Receive Date: 20251126
  Receipt Date: 20251216
  Transmission Date: 20260117
  Serious: Yes (Hospitalization)
  Sender: DAIICHI
  Company Number: CN-DSJP-DS-2025-178055-CN

PATIENT
  Age: 71 Year
  Sex: Female
  Weight: 51 kg

DRUGS (19)
  1. ENHERTU [Suspect]
     Active Substance: FAM-TRASTUZUMAB DERUXTECAN-NXKI
     Indication: HER2 mutant non-small cell lung cancer
     Dosage: 270 MG, ONCE EVERY 3 WK
     Route: 042
     Dates: start: 20250806, end: 20250806
  2. ENHERTU [Suspect]
     Active Substance: FAM-TRASTUZUMAB DERUXTECAN-NXKI
     Dosage: 270 MG, ONCE EVERY 3 WK
     Route: 042
     Dates: start: 20250828, end: 20250828
  3. ENHERTU [Suspect]
     Active Substance: FAM-TRASTUZUMAB DERUXTECAN-NXKI
     Dosage: 270 MG, ONCE EVERY 3 WK
     Route: 042
     Dates: start: 20250919, end: 20250919
  4. ENHERTU [Suspect]
     Active Substance: FAM-TRASTUZUMAB DERUXTECAN-NXKI
     Dosage: 270 MG, ONCE EVERY 3 WK
     Route: 042
     Dates: start: 20251010, end: 20251010
  5. ENHERTU [Suspect]
     Active Substance: FAM-TRASTUZUMAB DERUXTECAN-NXKI
     Dosage: 270 MG, ONCE EVERY 3 WK
     Route: 042
     Dates: start: 20251031, end: 20251031
  6. ENHERTU [Suspect]
     Active Substance: FAM-TRASTUZUMAB DERUXTECAN-NXKI
     Dosage: 270 MG, ONCE EVERY 3 WK
     Route: 042
     Dates: start: 20251202, end: 20251202
  7. CAPTOPRIL [Concomitant]
     Active Substance: CAPTOPRIL
     Indication: Hypertension
     Dosage: 25 MG, INTERMITTENT ORAL ADMINISTRATION
     Route: 048
     Dates: start: 1985
  8. HYDROCHLOROTHIAZIDE [Concomitant]
     Active Substance: HYDROCHLOROTHIAZIDE
     Indication: Hypertension
     Dosage: 25 MG, INTERMITTENT ORAL ADMINISTRATION
     Route: 048
     Dates: start: 1985
  9. APREPITANT [Concomitant]
     Active Substance: APREPITANT
     Indication: Antiemetic supportive care
     Dosage: 80 MG, QD
     Route: 048
     Dates: start: 20251011, end: 20251012
  10. APREPITANT [Concomitant]
     Active Substance: APREPITANT
     Dosage: 125 MG, QD
     Route: 048
     Dates: start: 20251031, end: 20251031
  11. APREPITANT [Concomitant]
     Active Substance: APREPITANT
     Dosage: 80 MG, QD
     Route: 048
     Dates: start: 20251101, end: 20251102
  12. MAGNESIUM ISOGLYCYRRHIZINATE [Concomitant]
     Active Substance: MAGNESIUM ISOGLYCYRRHIZINATE
     Indication: Alanine aminotransferase increased
     Dosage: 200 MG, QD
     Route: 041
     Dates: start: 20251031, end: 20251031
  13. MAGNESIUM ISOGLYCYRRHIZINATE [Concomitant]
     Active Substance: MAGNESIUM ISOGLYCYRRHIZINATE
     Indication: Aspartate aminotransferase increased
     Dosage: 200 MG, QD
     Route: 041
     Dates: start: 20251112
  14. YI QI WEI XUE [Concomitant]
     Indication: Anaemia
     Dosage: 1.8 G, TID
     Route: 048
     Dates: start: 20251029
  15. HUMAN ERYTHROPOIETIN [Concomitant]
     Indication: Anaemia
     Dosage: 10000 IU, QD
     Route: 058
     Dates: start: 20251031, end: 20251031
  16. BICYCLOL [Concomitant]
     Active Substance: BICYCLOL
     Indication: Alanine aminotransferase increased
     Dosage: 50 MG, QD
     Route: 048
     Dates: start: 20250917, end: 20251012
  17. FAMOTIDINE [Concomitant]
     Active Substance: FAMOTIDINE
     Indication: Gastrointestinal disorder prophylaxis
     Dosage: 40 MG, QD
     Route: 041
     Dates: start: 20251031, end: 20251031
  18. TETRACAINE HYDROCHLORIDE [Concomitant]
     Active Substance: TETRACAINE HYDROCHLORIDE
     Indication: Anaesthesia
     Dosage: 2 G, SINGLE
     Dates: start: 20251112, end: 20251112
  19. SIMETHICONE (DIMETHICONE) [Concomitant]
     Active Substance: DIMETHICONE
     Indication: Adjuvant therapy
     Dosage: 1 ML, SINGLE
     Dates: start: 20251112, end: 20251112

REACTIONS (2)
  - Upper gastrointestinal haemorrhage [Recovered/Resolved]
  - Vomiting [Recovered/Resolved]

NARRATIVE: CASE EVENT DATE: 20251111
